FAERS Safety Report 14390883 (Version 1)
Quarter: 2018Q1

REPORT INFORMATION
  Report Type: Report from Study
  Country: CA (occurrence: CA)
  Receive Date: 20180116
  Receipt Date: 20180116
  Transmission Date: 20180509
  Serious: Yes (Other)
  Sender: FDA-Public Use
  Company Number: CA-AMGEN-CANSL2018002699

PATIENT
  Age: 72 Year
  Sex: Female

DRUGS (1)
  1. XGEVA [Suspect]
     Active Substance: DENOSUMAB
     Indication: BREAST CANCER
     Dosage: 120 MG (IN 1.7ML), UNK
     Route: 065
     Dates: start: 20171120

REACTIONS (1)
  - Blood calcium increased [Recovering/Resolving]

NARRATIVE: CASE EVENT DATE: 2017
